FAERS Safety Report 8161788-X (Version None)
Quarter: 2012Q1

REPORT INFORMATION
  Report Type: 
  Country: None (occurrence: None)
  Receive Date: 20120224
  Receipt Date: 20110415
  Transmission Date: 20120608
  Serious: No
  Sender: FDA-Public Use
  Company Number: US-BRISTOL-MYERS SQUIBB COMPANY-15678642

PATIENT
  Age: 56 Year
  Sex: Female

DRUGS (2)
  1. METFORMIN HCL [Suspect]
     Indication: GLUCOSE TOLERANCE IMPAIRED
  2. LANTUS [Suspect]
     Indication: GLUCOSE TOLERANCE IMPAIRED
     Dosage: 1 DF = 40 UNITS:LANTUS SOLOSTAR 100 IU/ML
     Route: 058
     Dates: start: 20100101

REACTIONS (1)
  - FATIGUE [None]
